FAERS Safety Report 4767688-7 (Version None)
Quarter: 2005Q3

REPORT INFORMATION
  Report Type: 
  Country: None (occurrence: None)
  Receive Date: 20050912
  Receipt Date: 20050626
  Transmission Date: 20060218
  Serious: Yes (Hospitalization)
  Sender: FDA-Public Use
  Company Number: 03H-062-0218770-00

PATIENT
  Sex: Male

DRUGS (1)
  1. THEOPHYLLINE IN DEXTROSE 5% [Suspect]

REACTIONS (7)
  - CONVULSION [None]
  - DIARRHOEA [None]
  - DRUG TOXICITY [None]
  - HYPOKALAEMIA [None]
  - POISONING DELIBERATE [None]
  - TACHYCARDIA [None]
  - VICTIM OF CHILD ABUSE [None]
